FAERS Safety Report 7712647-5 (Version None)
Quarter: 2011Q3

REPORT INFORMATION
  Report Type: 
  Country: None (occurrence: None)
  Receive Date: 20110826
  Receipt Date: 20110818
  Transmission Date: 20111222
  Serious: Yes (Other)
  Sender: FDA-Public Use
  Company Number: US-JNJFOC-20110810305

PATIENT
  Sex: Female
  Weight: 58.51 kg

DRUGS (1)
  1. ORTHO EVRA [Suspect]
     Indication: AMENORRHOEA
     Route: 062
     Dates: start: 20110601, end: 20110722

REACTIONS (3)
  - DIZZINESS [None]
  - OFF LABEL USE [None]
  - SYNCOPE [None]
